FAERS Safety Report 5538442-3 (Version None)
Quarter: 2007Q4

REPORT INFORMATION
  Report Type: 
  Country: None (occurrence: None)
  Receive Date: 20071205
  Receipt Date: 20071119
  Transmission Date: 20080405
  Serious: Yes (Hospitalization, Disabling)
  Sender: FDA-Public Use
  Company Number: 8028307

PATIENT
  Age: 54 Year
  Sex: Female

DRUGS (11)
  1. PREDNISOLONE [Suspect]
     Dosage: 7.5 MG; PO
     Route: 048
  2. LEFLUNOMIDE [Suspect]
     Dosage: 10 MG; PO
     Route: 048
  3. AMITRIPTLINE HCL [Concomitant]
  4. ASPIRIN [Concomitant]
  5. ATENOLOL [Concomitant]
  6. BENDROFLUMETHIAZIDE [Concomitant]
  7. FLUOXETINE [Concomitant]
  8. LEVOTHYROXINE SODIUM [Concomitant]
  9. NAPROXEN [Concomitant]
  10. PREMIQUE [Concomitant]
  11. SIMVASTATIN [Concomitant]

REACTIONS (2)
  - IMMUNOSUPPRESSION [None]
  - NECROTISING RETINITIS [None]
